FAERS Safety Report 5015278-3 (Version None)
Quarter: 2006Q2

REPORT INFORMATION
  Report Type: 
  Country: None (occurrence: None)
  Receive Date: 20060601
  Receipt Date: 20060519
  Transmission Date: 20061013
  Serious: Yes (Other)
  Sender: FDA-Public Use
  Company Number: PHBS2006IL07644

PATIENT
  Age: 27 Year
  Sex: Female

DRUGS (3)
  1. TEGRETOL [Suspect]
     Indication: MYOCLONIC EPILEPSY
     Dosage: 200 MG/DAY
     Route: 048
  2. TOPAMAX [Suspect]
     Indication: MYOCLONIC EPILEPSY
     Dosage: 250 MG/DAY
     Route: 065
  3. CLONEX [Suspect]
     Dosage: 0.5 MG/DAY
     Route: 048

REACTIONS (2)
  - DRUG EXPOSURE DURING PREGNANCY [None]
  - PRE-ECLAMPSIA [None]
